FAERS Safety Report 14930566 (Version 2)
Quarter: 2018Q2

REPORT INFORMATION
  Report Type: Spontaneous
  Country: US (occurrence: US)
  Receive Date: 20180523
  Receipt Date: 20180613
  Transmission Date: 20180711
  Serious: No
  Sender: FDA-Public Use
  Company Number: US-FRESENIUS KABI-FK201806086

PATIENT
  Age: 34 Year
  Sex: Female

DRUGS (12)
  1. CHORIONIC GONADOTROPIN [Suspect]
     Active Substance: CHORIOGONADOTROPIN ALFA
     Indication: OOCYTE HARVEST
  2. MENOPUR [Concomitant]
     Active Substance: FOLLITROPIN\LUTEINIZING HORMONE
     Indication: OVULATION INDUCTION
     Route: 065
  3. FOLLISTIM [Concomitant]
     Active Substance: FOLLITROPIN
     Indication: IN VITRO FERTILISATION
  4. MENOPUR [Concomitant]
     Active Substance: FOLLITROPIN\LUTEINIZING HORMONE
     Indication: IN VITRO FERTILISATION
  5. CHORIONIC GONADOTROPIN [Suspect]
     Active Substance: CHORIOGONADOTROPIN ALFA
     Indication: IN VITRO FERTILISATION
  6. MENOPUR [Concomitant]
     Active Substance: FOLLITROPIN\LUTEINIZING HORMONE
     Indication: OOCYTE HARVEST
  7. GANIRELIX [Concomitant]
     Active Substance: GANIRELIX
     Indication: OVULATION INDUCTION
     Route: 065
  8. GANIRELIX [Concomitant]
     Active Substance: GANIRELIX
     Indication: IN VITRO FERTILISATION
  9. FOLLISTIM [Concomitant]
     Active Substance: FOLLITROPIN
     Indication: OOCYTE HARVEST
  10. GANIRELIX [Concomitant]
     Active Substance: GANIRELIX
     Indication: OOCYTE HARVEST
  11. FOLLISTIM [Concomitant]
     Active Substance: FOLLITROPIN
     Indication: OVULATION INDUCTION
     Route: 065
  12. CHORIONIC GONADOTROPIN [Suspect]
     Active Substance: CHORIOGONADOTROPIN ALFA
     Indication: OVULATION INDUCTION
     Route: 030
     Dates: start: 20180520, end: 20180520

REACTIONS (2)
  - Anovulatory cycle [Unknown]
  - Product preparation error [Unknown]

NARRATIVE: CASE EVENT DATE: 20180522
